FAERS Safety Report 10881188 (Version 1)
Quarter: 2015Q1

REPORT INFORMATION
  Report Type: Spontaneous
  Country: US (occurrence: US)
  Receive Date: 20150303
  Receipt Date: 20150303
  Transmission Date: 20150721
  Serious: No
  Sender: FDA-Public Use
  Company Number: US-BAYER-2015-030867

PATIENT
  Age: 42 Year
  Sex: Female

DRUGS (2)
  1. MIRENA [Suspect]
     Active Substance: LEVONORGESTREL
     Indication: METRORRHAGIA
     Dosage: 20 MCG/24HR, CONT
     Route: 015
     Dates: start: 20150220, end: 20150220
  2. MIRENA [Suspect]
     Active Substance: LEVONORGESTREL
     Indication: METRORRHAGIA
     Dosage: 20 MCG/24HR, CONT
     Route: 015
     Dates: start: 20150220

REACTIONS (8)
  - Abdominal pain [Not Recovered/Not Resolved]
  - Anxiety [None]
  - Vaginal haemorrhage [Not Recovered/Not Resolved]
  - Device difficult to use [None]
  - Device issue [None]
  - Tension [Not Recovered/Not Resolved]
  - Off label use [None]
  - Muscle spasms [Not Recovered/Not Resolved]

NARRATIVE: CASE EVENT DATE: 20150220
